FAERS Safety Report 18103596 (Version 2)
Quarter: 2020Q3

REPORT INFORMATION
  Report Type: Spontaneous
  Country: US (occurrence: US)
  Receive Date: 20200803
  Receipt Date: 20200804
  Transmission Date: 20201103
  Serious: No
  Sender: FDA-Public Use
  Company Number: US-PFIZER INC-2020117051

PATIENT
  Age: 75 Year
  Sex: Male

DRUGS (1)
  1. XELJANZ [Suspect]
     Active Substance: TOFACITINIB CITRATE
     Dosage: 30 MG, 1X/DAY (10 MG BID, 5 MG BID)

REACTIONS (3)
  - Prescribed overdose [Unknown]
  - Fatigue [Unknown]
  - Asthenia [Unknown]
